FAERS Safety Report 4804612-2 (Version None)
Quarter: 2005Q4

REPORT INFORMATION
  Report Type: 
  Country: None (occurrence: None)
  Receive Date: 20051020
  Receipt Date: 20051013
  Transmission Date: 20060501
  Serious: Yes (Hospitalization)
  Sender: FDA-Public Use
  Company Number: US-MERCK-0510USA07067

PATIENT
  Age: 43 Year
  Sex: Male

DRUGS (3)
  1. VIOXX [Suspect]
     Indication: HEADACHE
     Route: 048
  2. INSULIN [Concomitant]
     Route: 065
  3. TRAZODONE HYDROCHLORIDE [Concomitant]
     Route: 065

REACTIONS (2)
  - CHEST DISCOMFORT [None]
  - CHEST PAIN [None]
